FAERS Safety Report 24561108 (Version 1)
Quarter: 2024Q4

REPORT INFORMATION
  Report Type: Spontaneous
  Country: US (occurrence: US)
  Receive Date: 20241029
  Receipt Date: 20241029
  Transmission Date: 20250115
  Serious: No
  Sender: FRESENIUS KABI
  Company Number: US-FreseniusKabi-FK202415874

PATIENT
  Sex: Female

DRUGS (2)
  1. DIPHENHYDRAMINE [Suspect]
     Active Substance: DIPHENHYDRAMINE
     Indication: Product used for unknown indication
  2. MONISTAT 3 [Suspect]
     Active Substance: MICONAZOLE NITRATE
     Indication: Product used for unknown indication

REACTIONS (3)
  - Feeling jittery [Unknown]
  - Tachycardia [Unknown]
  - Rash [Unknown]
